FAERS Safety Report 17754977 (Version 1)
Quarter: 2020Q2

REPORT INFORMATION
  Report Type: Spontaneous
  Country: GB (occurrence: GB)
  Receive Date: 20200507
  Receipt Date: 20200507
  Transmission Date: 20200714
  Serious: Yes (Hospitalization)
  Sender: FDA-Public Use
  Company Number: GB-TEVA-2020-GB-1230350

PATIENT
  Age: 81 Year
  Sex: Female
  Weight: 59 kg

DRUGS (13)
  1. LANSOPRAZOLE. [Concomitant]
     Active Substance: LANSOPRAZOLE
     Dosage: 1 DOSAGE FORM
     Dates: start: 20191002, end: 20200331
  2. CLENIL MODULITE [Concomitant]
     Active Substance: BECLOMETHASONE DIPROPIONATE
     Dosage: 2 DOSAGE FORMS
     Route: 055
     Dates: start: 20191002
  3. CANDESARTAN. [Concomitant]
     Active Substance: CANDESARTAN
     Dosage: ONCE A DAY.
     Dates: start: 20200331
  4. PARACETAMOL [Concomitant]
     Active Substance: ACETAMINOPHEN
     Dosage: ONE OR TWO TO BE TAKEN FOUR TIMES A DAY IF NEEDED.
     Dates: start: 20191002
  5. PREDNISOLONE. [Concomitant]
     Active Substance: PREDNISOLONE
     Dosage: 8 DOSAGE FORMS
     Dates: start: 20200214, end: 20200219
  6. METFORMIN [Concomitant]
     Active Substance: METFORMIN HYDROCHLORIDE
     Dosage: 2 DOSAGE FORMS
     Dates: start: 20191002
  7. SALBUTAMOL [Concomitant]
     Active Substance: ALBUTEROL
     Dosage: 2 DOSAGE FORMS
     Route: 055
     Dates: start: 20191002
  8. AMLODIPINE [Concomitant]
     Active Substance: AMLODIPINE BESYLATE
     Dosage: 1 DOSAGE FORM
     Dates: start: 20200320
  9. INDAPAMIDE. [Suspect]
     Active Substance: INDAPAMIDE
     Dosage: 1.5 MILLIGRAM DAILY; 1.5 MG EVERY MORNING.
     Dates: start: 20200320
  10. ALGINATES [Concomitant]
     Dosage: 30 ML AFTER FOOD.
     Dates: start: 20191002
  11. EPROSARTAN [Concomitant]
     Active Substance: EPROSARTAN
     Dosage: 1 DOSAGE FORM
     Dates: start: 20191002, end: 20200331
  12. COLECALCIFEROL [Concomitant]
     Active Substance: CHOLECALCIFEROL
     Dosage: 2 DOSAGE FORMS INSUFFICIENCY IN ADULTS.
     Dates: start: 20200415
  13. SIMVASTATIN. [Concomitant]
     Active Substance: SIMVASTATIN
     Dosage: 1 DOSAGE FORMS DAILY; 1 DOSAGE FORM AT NIGHT.
     Dates: start: 20191002

REACTIONS (2)
  - Confusional state [Unknown]
  - Hyponatraemia [Recovering/Resolving]

NARRATIVE: CASE EVENT DATE: 20200329
